FAERS Safety Report 4972927-3 (Version None)
Quarter: 2006Q2

REPORT INFORMATION
  Report Type: 
  Country: None (occurrence: None)
  Receive Date: 20060414
  Receipt Date: 20060405
  Transmission Date: 20061013
  Serious: Yes (Hospitalization)
  Sender: FDA-Public Use
  Company Number: JP-JNJFOC-20040808331

PATIENT
  Sex: Female
  Weight: 60 kg

DRUGS (26)
  1. REMICADE [Suspect]
     Route: 042
  2. REMICADE [Suspect]
     Route: 042
  3. REMICADE [Suspect]
     Route: 042
  4. REMICADE [Suspect]
     Route: 042
  5. REMICADE [Suspect]
     Route: 042
  6. REMICADE [Suspect]
     Indication: RHEUMATOID ARTHRITIS
     Route: 042
  7. RHEUMATREX [Concomitant]
     Dosage: APPROXIMATELY
     Route: 048
  8. RHEUMATREX [Concomitant]
     Route: 048
  9. RHEUMATREX [Concomitant]
     Route: 048
  10. RHEUMATREX [Concomitant]
     Indication: RHEUMATOID ARTHRITIS
     Route: 048
  11. PREDONIN [Concomitant]
     Route: 048
  12. PREDONIN [Concomitant]
     Route: 048
  13. PREDONIN [Concomitant]
     Indication: RHEUMATOID ARTHRITIS
     Route: 048
  14. LOXONIN [Concomitant]
     Route: 048
  15. LOXONIN [Concomitant]
     Indication: RHEUMATOID ARTHRITIS
     Dosage: DOSE = 3 TABS
     Route: 048
  16. KETOPROFEN [Concomitant]
     Indication: RHEUMATOID ARTHRITIS
     Dosage: DOSE 1SHT OD
  17. CYTOTEC [Concomitant]
     Dosage: DOSE = 800 RG
     Route: 048
  18. GASTER [Concomitant]
     Route: 048
  19. COLINORM [Concomitant]
     Route: 048
  20. RIMATIL [Concomitant]
     Indication: RHEUMATOID ARTHRITIS
     Route: 048
  21. FOLIAMIN [Concomitant]
     Route: 048
  22. ADRENAL HORMONE PREPARATION [Concomitant]
     Indication: RHEUMATOID ARTHRITIS
  23. BENZBROMARONE [Concomitant]
     Route: 048
  24. MARZULENE S [Concomitant]
     Route: 048
  25. MARZULENE S [Concomitant]
     Route: 048
  26. ANTITUBERCULOUS DRUG [Concomitant]

REACTIONS (3)
  - DIARRHOEA [None]
  - DISSEMINATED TUBERCULOSIS [None]
  - PYREXIA [None]
